FAERS Safety Report 13212962 (Version 2)
Quarter: 2017Q1

REPORT INFORMATION
  Report Type: Spontaneous
  Country: US (occurrence: US)
  Receive Date: 20170210
  Receipt Date: 20170223
  Transmission Date: 20170428
  Serious: Yes (Hospitalization, Disabling, Other)
  Sender: FDA-Public Use
  Company Number: US-SAOL THERAPEUTICS-2017SAO00256

PATIENT
  Age: 10 Year

DRUGS (2)
  1. BACLOFEN. [Suspect]
     Active Substance: BACLOFEN
     Indication: MUSCLE SPASTICITY
     Dosage: 25 ?G, \DAY
     Route: 037
  2. BACLOFEN. [Suspect]
     Active Substance: BACLOFEN
     Dosage: 38 ?G, \DAY
     Route: 037

REACTIONS (3)
  - Diplegia [Not Recovered/Not Resolved]
  - Orthopaedic procedure [Unknown]
  - Pneumorrhachis [Unknown]

NARRATIVE: CASE EVENT DATE: 20170127
